FAERS Safety Report 16258410 (Version 1)
Quarter: 2019Q2

REPORT INFORMATION
  Report Type: Report from Study
  Country: US (occurrence: US)
  Receive Date: 20190430
  Receipt Date: 20190430
  Transmission Date: 20190711
  Serious: Yes (Other)
  Sender: FDA-Public Use
  Company Number: US-ACTELION-A-NJ2019-189702

PATIENT
  Age: 80 Year
  Sex: Female

DRUGS (14)
  1. OPSUMIT [Suspect]
     Active Substance: MACITENTAN
     Indication: PULMONARY HYPERTENSION
     Dosage: 10 MG, QD
     Route: 048
     Dates: start: 201810
  2. ARAVA [Concomitant]
     Active Substance: LEFLUNOMIDE
  3. FOSAMAX [Concomitant]
     Active Substance: ALENDRONATE SODIUM
  4. FERROUS SULFATE. [Concomitant]
     Active Substance: FERROUS SULFATE
  5. FOLIC ACID. [Concomitant]
     Active Substance: FOLIC ACID
  6. CALCIUM CARBONATE W/COLECALCIFEROL [Concomitant]
     Active Substance: CALCIUM CARBONATE\CHOLECALCIFEROL
  7. LASIX [Concomitant]
     Active Substance: FUROSEMIDE
  8. SPIRONOLACTONE. [Concomitant]
     Active Substance: SPIRONOLACTONE
  9. WARFARIN [Concomitant]
     Active Substance: WARFARIN
  10. DIGOXIN. [Concomitant]
     Active Substance: DIGOXIN
  11. SILDENAFIL. [Concomitant]
     Active Substance: SILDENAFIL
  12. LEVOTHYROXINE. [Concomitant]
     Active Substance: LEVOTHYROXINE
  13. NPH ILETIN II [Concomitant]
     Active Substance: INSULIN BEEF/PORK
  14. LIPITOR [Concomitant]
     Active Substance: ATORVASTATIN CALCIUM

REACTIONS (2)
  - Cellulitis [Unknown]
  - Infected bite [Unknown]

NARRATIVE: CASE EVENT DATE: 201904
